FAERS Safety Report 8034366-0 (Version None)
Quarter: 2012Q1

REPORT INFORMATION
  Report Type: 
  Country: None (occurrence: None)
  Receive Date: 20120110
  Receipt Date: 20120104
  Transmission Date: 20120608
  Serious: Yes (Other)
  Sender: FDA-Public Use
  Company Number: PHHY2012GB000804

PATIENT
  Age: 21 Year
  Sex: Female
  Weight: 134 kg

DRUGS (12)
  1. AMOXICILLIN [Suspect]
     Dosage: 500 MG, TID
     Dates: start: 20090226, end: 20090226
  2. CITALOPRAM [Concomitant]
     Dosage: 20 MG, QD
  3. DOXYCYCLINE [Concomitant]
     Dosage: UNK
     Dates: start: 20081101
  4. IMPLANON [Interacting]
     Indication: CONTRACEPTION
     Dosage: 68 MG, UNK
     Route: 058
     Dates: start: 20080818
  5. CEPHALEXIN [Concomitant]
     Dosage: 250 MG, QID
  6. CITALOPRAM [Concomitant]
     Dosage: 40 MG, QD
  7. LEVOTHYROXINE SODIUM [Concomitant]
     Indication: HYPOTHYROIDISM
     Dosage: 200 UG, QD
  8. ZOPICLONE [Concomitant]
     Dosage: 3 G, UNK
  9. SODIUM BICARBONATE [Concomitant]
  10. CITALOPRAM [Concomitant]
     Dosage: 30 MG, QD
  11. DIPROBASE CREAM [Concomitant]
  12. LEVOTHYROXINE SODIUM [Concomitant]
     Dosage: 400 UG, UNK

REACTIONS (3)
  - DRUG INTERACTION [None]
  - INCORRECT DRUG ADMINISTRATION DURATION [None]
  - BLOOD THYROID STIMULATING HORMONE INCREASED [None]
